FAERS Safety Report 18085146 (Version 2)
Quarter: 2020Q4

REPORT INFORMATION
  Report Type: Spontaneous
  Country: DE (occurrence: DE)
  Receive Date: 20200728
  Receipt Date: 20201217
  Transmission Date: 20210113
  Serious: Yes (Hospitalization, Other)
  Sender: FDA-Public Use
  Company Number: NVSC2020DE207537

PATIENT
  Sex: Female

DRUGS (2)
  1. BEOVU [Suspect]
     Active Substance: BROLUCIZUMAB-DBLL
     Indication: RETINAL VEIN THROMBOSIS
     Dosage: UNK
     Route: 031
     Dates: start: 202005
  2. BEOVU [Suspect]
     Active Substance: BROLUCIZUMAB-DBLL
     Dosage: UNK
     Route: 031
     Dates: start: 20200714

REACTIONS (9)
  - Condition aggravated [Recovered/Resolved with Sequelae]
  - Hypertension [Unknown]
  - Macular oedema [Recovered/Resolved with Sequelae]
  - Circulatory collapse [Unknown]
  - Product use in unapproved indication [Unknown]
  - Visual acuity reduced [Recovered/Resolved with Sequelae]
  - Autoimmune disorder [Recovered/Resolved with Sequelae]
  - Non-infectious endophthalmitis [Recovered/Resolved with Sequelae]
  - Visual field defect [Recovered/Resolved with Sequelae]

NARRATIVE: CASE EVENT DATE: 202005
